FAERS Safety Report 16300864 (Version 2)
Quarter: 2019Q2

REPORT INFORMATION
  Report Type: Report from Study
  Country: DE (occurrence: DE)
  Receive Date: 20190510
  Receipt Date: 20190529
  Transmission Date: 20190711
  Serious: Yes (Hospitalization)
  Sender: FDA-Public Use
  Company Number: DE-CELGENEUS-DEU-20190502141

PATIENT
  Age: 33 Year
  Sex: Female
  Weight: 71 kg

DRUGS (5)
  1. CYCLOPHOSPHAMIDE. [Suspect]
     Active Substance: CYCLOPHOSPHAMIDE
     Indication: TRIPLE NEGATIVE BREAST CANCER
     Route: 041
     Dates: start: 20190409
  2. DENOSUMAB [Suspect]
     Active Substance: DENOSUMAB
     Indication: TRIPLE NEGATIVE BREAST CANCER
     Route: 058
     Dates: start: 20181220
  3. ABRAXANE [Suspect]
     Active Substance: PACLITAXEL
     Indication: TRIPLE NEGATIVE BREAST CANCER
     Route: 041
     Dates: start: 20181220
  4. CARBOPLATIN. [Suspect]
     Active Substance: CARBOPLATIN
     Indication: TRIPLE NEGATIVE BREAST CANCER
     Dosage: 271 MILLIGRAM
     Route: 041
     Dates: start: 20181220
  5. EPIRUBICIN [Suspect]
     Active Substance: EPIRUBICIN
     Indication: TRIPLE NEGATIVE BREAST CANCER
     Route: 041
     Dates: start: 20190409, end: 20190429

REACTIONS (1)
  - Fatigue [Recovered/Resolved]

NARRATIVE: CASE EVENT DATE: 20190429
